FAERS Safety Report 19981264 (Version 2)
Quarter: 2021Q4

REPORT INFORMATION
  Report Type: Report from Study
  Country: TW (occurrence: TW)
  Receive Date: 20211021
  Receipt Date: 20211122
  Transmission Date: 20220303
  Serious: Yes (Other)
  Sender: FDA-Public Use
  Company Number: TW-BAYER-2021A232518

PATIENT

DRUGS (2)
  1. EYLEA [Suspect]
     Active Substance: AFLIBERCEPT
     Indication: Neovascular age-related macular degeneration
     Dosage: 0.05 ML, ONCE, RIGHT EYE
     Route: 031
     Dates: start: 2019
  2. EYLEA [Suspect]
     Active Substance: AFLIBERCEPT
     Dosage: UNK, , RIGHT EYE
     Route: 031
     Dates: start: 20210419

REACTIONS (2)
  - Xerophthalmia [Recovering/Resolving]
  - Ocular hyperaemia [Recovering/Resolving]

NARRATIVE: CASE EVENT DATE: 20210301
